FAERS Safety Report 6852118-1 (Version None)
Quarter: 2010Q3

REPORT INFORMATION
  Report Type: 
  Country: None (occurrence: None)
  Receive Date: 20100717
  Receipt Date: 20080114
  Transmission Date: 20110219
  Serious: No
  Sender: FDA-Public Use
  Company Number: US-PFIZER INC-2007092637

PATIENT
  Sex: Female
  Weight: 70.5 kg

DRUGS (3)
  1. CHANTIX [Suspect]
     Indication: SMOKING CESSATION THERAPY
     Route: 048
     Dates: start: 20071001, end: 20071027
  2. VITAMINS [Concomitant]
  3. MULTI-VITAMINS [Concomitant]

REACTIONS (4)
  - CRYING [None]
  - FLANK PAIN [None]
  - HYPOAESTHESIA [None]
  - MUSCLE SPASMS [None]
